FAERS Safety Report 4773819-5 (Version None)
Quarter: 2005Q3

REPORT INFORMATION
  Report Type: 
  Country: None (occurrence: None)
  Receive Date: 20050920
  Receipt Date: 20050324
  Transmission Date: 20060218
  Serious: Yes (Other)
  Sender: FDA-Public Use
  Company Number: SER/8/2083

PATIENT
  Sex: Female

DRUGS (1)
  1. PAROXETINE [Suspect]

REACTIONS (3)
  - COMPLETED SUICIDE [None]
  - INSOMNIA [None]
  - PANIC ATTACK [None]
